FAERS Safety Report 18924645 (Version 2)
Quarter: 2021Q1

REPORT INFORMATION
  Report Type: Spontaneous
  Country: US (occurrence: US)
  Receive Date: 20210223
  Receipt Date: 20210223
  Transmission Date: 20210420
  Serious: Yes (Other)
  Sender: FDA-Public Use
  Company Number: US-CELGENEUS-USA-20210204798

PATIENT
  Sex: Male

DRUGS (1)
  1. POMALYST [Suspect]
     Active Substance: POMALIDOMIDE
     Indication: PLASMA CELL MYELOMA
     Dosage: 3 MILLIGRAM
     Route: 048
     Dates: start: 202101

REACTIONS (10)
  - Pain in extremity [Unknown]
  - Oesophageal disorder [Unknown]
  - Lower limb fracture [Unknown]
  - Feeding disorder [Unknown]
  - Upper limb fracture [Unknown]
  - Illness [Unknown]
  - Thyroid disorder [Unknown]
  - Dyspnoea [Unknown]
  - Cardiac disorder [Unknown]
  - Prostatic disorder [Unknown]

NARRATIVE: CASE EVENT DATE: 2021
